FAERS Safety Report 9729743 (Version 1)
Quarter: 2013Q4

REPORT INFORMATION
  Report Type: Spontaneous
  Country: US (occurrence: US)
  Receive Date: 20131204
  Receipt Date: 20131204
  Transmission Date: 20140711
  Serious: No
  Sender: FDA-Public Use
  Company Number: US-GILEAD-2009-0021976

PATIENT
  Sex: Male
  Weight: 95.25 kg

DRUGS (22)
  1. LETAIRIS [Suspect]
     Indication: PULMONARY ARTERIAL HYPERTENSION
     Route: 048
     Dates: start: 20081211
  2. METOLAZONE [Concomitant]
  3. NORVASC [Concomitant]
  4. NITROGLYCERIN [Concomitant]
  5. ISOSORBIDE [Concomitant]
  6. METOPROLOL [Concomitant]
  7. LISINOPRIL [Concomitant]
  8. ASPIRIN [Concomitant]
  9. LASIX [Concomitant]
  10. THEOPHYLLINE [Concomitant]
  11. ALBUTEROL [Concomitant]
  12. MAXAIR [Concomitant]
  13. PREDNISONE [Concomitant]
  14. SYMBICORT [Concomitant]
  15. NEXIUM [Concomitant]
  16. SUCRALFATE [Concomitant]
  17. FLOMAX [Concomitant]
  18. FACTIVE [Concomitant]
  19. BIAXIN [Concomitant]
  20. AMBIEN [Concomitant]
  21. POTASSIUM CHLORIDE [Concomitant]
  22. FERROUS SULFATE [Concomitant]

REACTIONS (3)
  - Blood disorder [Unknown]
  - Pruritus [Unknown]
  - Rash maculo-papular [Unknown]
